FAERS Safety Report 10218841 (Version 2)
Quarter: 2014Q2

REPORT INFORMATION
  Report Type: Spontaneous
  Country: US (occurrence: US)
  Receive Date: 20140605
  Receipt Date: 20140605
  Transmission Date: 20141212
  Serious: No
  Sender: FDA-Public Use
  Company Number: US-BAYER-2014-077439

PATIENT
  Age: 52 Year
  Sex: Male
  Weight: 74.83 kg

DRUGS (5)
  1. ALEVE CAPLET [Suspect]
     Indication: ANALGESIC THERAPY
     Dosage: 2 DF, PRN
     Route: 048
  2. ALEVE CAPLET [Suspect]
     Indication: ANALGESIC THERAPY
     Dosage: 2 DF, PRN
     Route: 048
  3. ATIVAN [Concomitant]
     Dosage: .5 MG, UNK
  4. VICODIN [Concomitant]
  5. LUNESTA [Concomitant]

REACTIONS (5)
  - Foreign body [Recovered/Resolved]
  - Vomiting [Recovered/Resolved]
  - Intentional product misuse [None]
  - Retching [Recovered/Resolved]
  - Regurgitation [Recovered/Resolved]
